FAERS Safety Report 23032723 (Version 3)
Quarter: 2023Q4

REPORT INFORMATION
  Report Type: Report from Study
  Country: BR (occurrence: BR)
  Receive Date: 20231005
  Receipt Date: 20231011
  Transmission Date: 20240110
  Serious: Yes (Other)
  Sender: FDA-Public Use
  Company Number: BR-002147023-NVSC2023BR213792

PATIENT
  Age: 46 Year
  Sex: Female

DRUGS (1)
  1. KISQALI [Suspect]
     Active Substance: RIBOCICLIB
     Indication: Breast cancer
     Dosage: UNK
     Route: 065
     Dates: start: 20230818

REACTIONS (2)
  - Immunosuppression [Recovered/Resolved]
  - Eye disorder [Unknown]

NARRATIVE: CASE EVENT DATE: 20230801
